FAERS Safety Report 5972597-1 (Version None)
Quarter: 2008Q4

REPORT INFORMATION
  Report Type: 
  Country: None (occurrence: None)
  Receive Date: 20081125
  Receipt Date: 20081106
  Transmission Date: 20090506
  Serious: Yes (Other)
  Sender: FDA-Public Use
  Company Number: ADE# 08-182

PATIENT
  Age: 32 Year
  Sex: Female

DRUGS (3)
  1. TRAMADOL HYDROCHLORIDE [Suspect]
     Indication: MIGRAINE
     Dates: start: 20080530
  2. ZOLPIDEM [Concomitant]
  3. HYDROCODONE BITARTRATE [Concomitant]

REACTIONS (7)
  - ALCOHOL POISONING [None]
  - DRUG DISPENSING ERROR [None]
  - IMPAIRED DRIVING ABILITY [None]
  - LEGAL PROBLEM [None]
  - ROAD TRAFFIC ACCIDENT [None]
  - SOMNOLENCE [None]
  - UNRESPONSIVE TO STIMULI [None]
